FAERS Safety Report 7503756-4 (Version None)
Quarter: 2011Q2

REPORT INFORMATION
  Report Type: 
  Country: None (occurrence: None)
  Receive Date: 20110518
  Receipt Date: 20110510
  Transmission Date: 20111010
  Serious: Yes (Other)
  Sender: FDA-Public Use
  Company Number: IDA-00541

PATIENT
  Sex: Female

DRUGS (1)
  1. INDERAL [Suspect]
     Dosage: TABLET, ORAL
     Route: 048
     Dates: start: 20110201

REACTIONS (1)
  - DYSGEUSIA [None]
